FAERS Safety Report 10049124 (Version 1)
Quarter: 2014Q2

REPORT INFORMATION
  Report Type: Spontaneous
  Country: CA (occurrence: CA)
  Receive Date: 20140401
  Receipt Date: 20140401
  Transmission Date: 20141212
  Serious: Yes (Other)
  Sender: FDA-Public Use
  Company Number: CA-ROCHE-1369084

PATIENT
  Sex: Female

DRUGS (4)
  1. PEGASYS [Suspect]
     Indication: HEPATITIS C
     Route: 065
     Dates: start: 20120109, end: 20121118
  2. RIBAVIRIN [Suspect]
     Indication: HEPATITIS C
     Route: 065
     Dates: start: 20120109, end: 20121118
  3. TYLENOL [Concomitant]
     Dosage: EXTRA-STRENGTH.
     Route: 065
  4. BIAXIN [Concomitant]
     Indication: LOWER RESPIRATORY TRACT INFECTION

REACTIONS (4)
  - Tooth loss [Unknown]
  - Haemoglobin decreased [Unknown]
  - Hepatitis C [Unknown]
  - Lower respiratory tract infection [Unknown]
